FAERS Safety Report 10223612 (Version 2)
Quarter: 2014Q2

REPORT INFORMATION
  Report Type: Spontaneous
  Country: IT (occurrence: None)
  Receive Date: 20140605
  Receipt Date: 20140623
  Transmission Date: 20141212
  Serious: Yes (Other)
  Sender: FDA-Public Use
  Company Number: AUR-APL-2014-05891

PATIENT
  Age: 32 Year
  Sex: Female

DRUGS (4)
  1. DELORAZEPAM [Suspect]
     Indication: DEPRESSION
     Dosage: 40 ML, TOTAL, ORAL
     Route: 048
     Dates: start: 20140401, end: 20140401
  2. PAROXETINA [Suspect]
     Indication: DEPRESSION
     Dosage: 40 MG, TOTAL, ORAL
     Route: 048
     Dates: start: 20140401, end: 20140401
  3. LEXOTAN [Suspect]
     Indication: DEPRESSION
     Dosage: 45 MG, TOTAL, ORAL
     Route: 048
     Dates: start: 20140401, end: 20140401
  4. VELAMOX [Suspect]
     Indication: PRODUCT USED FOR UNKNOWN INDICATION
     Dosage: 12 GM, TOTAL,ORAL
     Route: 048
     Dates: start: 20140401, end: 20140401

REACTIONS (2)
  - Sopor [None]
  - Intentional self-injury [None]
